FAERS Safety Report 12194003 (Version 1)
Quarter: 2016Q1

REPORT INFORMATION
  Report Type: Spontaneous
  Country: US (occurrence: None)
  Receive Date: 20160318
  Receipt Date: 20160318
  Transmission Date: 20160526
  Serious: Yes (Death)
  Sender: FDA-Public Use
  Company Number: None

PATIENT
  Age: 86 Year
  Sex: Female

DRUGS (16)
  1. ASPIRIN. [Concomitant]
     Active Substance: ASPIRIN
  2. SPIRONOLACTONE. [Concomitant]
     Active Substance: SPIRONOLACTONE
  3. LEVOTHYROXINE. [Concomitant]
     Active Substance: LEVOTHYROXINE
  4. FLUTICASONE [Concomitant]
     Active Substance: FLUTICASONE\FLUTICASONE PROPIONATE
  5. ALBUTEROL. [Concomitant]
     Active Substance: ALBUTEROL
  6. MVI [Concomitant]
     Active Substance: VITAMINS
  7. SENNOSIDES. [Concomitant]
     Active Substance: SENNOSIDES
  8. DOCUSATE [Concomitant]
     Active Substance: DOCUSATE
  9. K-TAB [Concomitant]
     Active Substance: POTASSIUM CHLORIDE
  10. TRACLEER [Suspect]
     Active Substance: BOSENTAN
     Indication: PULMONARY ARTERIAL HYPERTENSION
     Route: 048
     Dates: start: 201411, end: 201602
  11. ATORVASTATIN [Concomitant]
     Active Substance: ATORVASTATIN
  12. METOPROLOL TARTRATE. [Concomitant]
     Active Substance: METOPROLOL TARTRATE
  13. CALCITRIOL. [Concomitant]
     Active Substance: CALCITRIOL
  14. CARBOXYMEHYICELLULOSE [Concomitant]
  15. CHLECALCIFEROL [Concomitant]
  16. FUROSEMIDE. [Concomitant]
     Active Substance: FUROSEMIDE

REACTIONS (4)
  - Mental status changes [None]
  - Confusional state [None]
  - Embolic stroke [None]
  - Aggression [None]

NARRATIVE: CASE EVENT DATE: 20160212
